FAERS Safety Report 23443901 (Version 3)
Quarter: 2024Q2

REPORT INFORMATION
  Report Type: Spontaneous
  Country: US (occurrence: US)
  Receive Date: 20240125
  Receipt Date: 20240520
  Transmission Date: 20240716
  Serious: Yes (Hospitalization, Other)
  Sender: FDA-Public Use
  Company Number: US-PFIZER INC-202400021345

PATIENT
  Age: 60 Year
  Sex: Female
  Weight: 56.7 kg

DRUGS (3)
  1. PAXLOVID [Suspect]
     Active Substance: NIRMATRELVIR\RITONAVIR
     Indication: COVID-19 treatment
     Dosage: 3 DF, 2X/DAY (2 NIRMATRELVIR AND 1 RITONAVIR; MORNING AND EVENING)
     Dates: start: 20240103, end: 20240105
  2. PAXLOVID [Suspect]
     Active Substance: NIRMATRELVIR\RITONAVIR
     Dosage: 3 DF, 2X/DAY (2 NIRMATRELVIR AND 1 RITONAVIR; MORNING ONLY)
     Dates: start: 20240106, end: 20240106
  3. PAXLOVID [Suspect]
     Active Substance: NIRMATRELVIR\RITONAVIR
     Dosage: 2 DF, 2X/DAY (1 MEDICATION AND 1 TABLET OF THE OTHER, EVENING ONLY)
     Dates: start: 20240106, end: 20240106

REACTIONS (14)
  - Acute kidney injury [Recovered/Resolved]
  - Blood sodium increased [Recovered/Resolved]
  - Oedema peripheral [Not Recovered/Not Resolved]
  - Urine output decreased [Recovered/Resolved]
  - Peripheral swelling [Recovered/Resolved]
  - Blood glucose increased [Unknown]
  - Blood creatinine increased [Unknown]
  - Hepatic enzyme increased [Unknown]
  - Blood potassium increased [Unknown]
  - Pruritus [Not Recovered/Not Resolved]
  - Specific gravity urine abnormal [Unknown]
  - Glomerular filtration rate decreased [Unknown]
  - Blood alkaline phosphatase increased [Not Recovered/Not Resolved]
  - Off label use [Unknown]

NARRATIVE: CASE EVENT DATE: 20240101
